FAERS Safety Report 8505589-9 (Version None)
Quarter: 2012Q3

REPORT INFORMATION
  Report Type: 
  Country: None (occurrence: None)
  Receive Date: 20120703
  Receipt Date: 20120616
  Transmission Date: 20120928
  Serious: No
  Sender: FDA-Public Use
  Company Number: 2012SP033640

PATIENT
  Age: 81 Year
  Sex: Female
  Weight: 77 kg

DRUGS (15)
  1. CLONAZEPAM [Concomitant]
  2. SAPHRIS [Suspect]
     Indication: DEPRESSION
     Dosage: 5 MG;QD;SL
     Route: 060
     Dates: start: 20120614, end: 20120620
  3. SAPHRIS [Suspect]
     Indication: ANXIETY
     Dosage: 5 MG;QD;SL
     Route: 060
     Dates: start: 20120614, end: 20120620
  4. SAPHRIS [Suspect]
     Indication: OBSESSIVE-COMPULSIVE DISORDER
     Dosage: 5 MG;QD;SL
     Route: 060
     Dates: start: 20120614, end: 20120620
  5. ATACAND [Concomitant]
  6. ABILIFY [Suspect]
     Indication: OBSESSIVE-COMPULSIVE DISORDER
     Dosage: 0.5 MG;QD;PO, 0.5 MG;QD;PO
     Route: 048
     Dates: start: 20120620
  7. ABILIFY [Suspect]
     Indication: DEPRESSION
     Dosage: 0.5 MG;QD;PO, 0.5 MG;QD;PO
     Route: 048
     Dates: start: 20120620
  8. ABILIFY [Suspect]
     Indication: ANXIETY
     Dosage: 0.5 MG;QD;PO, 0.5 MG;QD;PO
     Route: 048
     Dates: start: 20120620
  9. ABILIFY [Suspect]
     Indication: OBSESSIVE-COMPULSIVE DISORDER
     Dosage: 0.5 MG;QD;PO, 0.5 MG;QD;PO
     Route: 048
     Dates: end: 20120413
  10. ABILIFY [Suspect]
     Indication: DEPRESSION
     Dosage: 0.5 MG;QD;PO, 0.5 MG;QD;PO
     Route: 048
     Dates: end: 20120413
  11. ABILIFY [Suspect]
     Indication: ANXIETY
     Dosage: 0.5 MG;QD;PO, 0.5 MG;QD;PO
     Route: 048
     Dates: end: 20120413
  12. ALDACTONE [Concomitant]
  13. PAXIL [Concomitant]
  14. SYNTHROID [Concomitant]
  15. ESTRACE [Concomitant]

REACTIONS (14)
  - PARAESTHESIA [None]
  - INSOMNIA [None]
  - SWELLING [None]
  - MALAISE [None]
  - ANXIETY [None]
  - CHEST PAIN [None]
  - BALANCE DISORDER [None]
  - NIGHTMARE [None]
  - SWELLING FACE [None]
  - DYSKINESIA [None]
  - VISION BLURRED [None]
  - HYPERHIDROSIS [None]
  - DRUG EFFECT DECREASED [None]
  - BLOOD PRESSURE SYSTOLIC INCREASED [None]
